FAERS Safety Report 4359613-8 (Version None)
Quarter: 2004Q2

REPORT INFORMATION
  Report Type: 
  Country: None (occurrence: None)
  Receive Date: 20040512
  Receipt Date: 20040428
  Transmission Date: 20050107
  Serious: Yes (Hospitalization)
  Sender: FDA-Public Use
  Company Number: EWC010727517

PATIENT
  Age: 1 Year
  Sex: Male

DRUGS (1)
  1. CEFACLOR [Suspect]
     Indication: OTITIS MEDIA ACUTE
     Dosage: 500 MG/DAY

REACTIONS (1)
  - ANGIONEUROTIC OEDEMA [None]
